FAERS Safety Report 10465640 (Version 19)
Quarter: 2016Q2

REPORT INFORMATION
  Report Type: Spontaneous
  Country: CN (occurrence: CN)
  Receive Date: 20140919
  Receipt Date: 20160610
  Transmission Date: 20160815
  Serious: Yes (Death, Other)
  Sender: FDA-Public Use
  Company Number: CN-009507513-1409CHN009122

PATIENT
  Age: 54 Year
  Sex: Male
  Weight: 62 kg

DRUGS (11)
  1. TROPISETRON HYDROCHLORIDE [Concomitant]
     Active Substance: TROPISETRON HYDROCHLORIDE
     Indication: PROPHYLAXIS
  2. TROPISETRON HYDROCHLORIDE [Concomitant]
     Active Substance: TROPISETRON HYDROCHLORIDE
     Indication: PROPHYLAXIS OF NAUSEA AND VOMITING
     Dosage: 100ML, QD
     Route: 041
     Dates: start: 20140910, end: 20140911
  3. EMEND [Suspect]
     Active Substance: APREPITANT
     Dosage: 80 MG, ONCE, DAY 2
     Route: 048
     Dates: start: 20140911, end: 20140911
  4. EMEND [Suspect]
     Active Substance: APREPITANT
     Dosage: 80 MG, ONCE, DAY 3
     Route: 048
     Dates: start: 20140912, end: 20140912
  5. CAPECITABINE. [Concomitant]
     Active Substance: CAPECITABINE
     Indication: CHEMOTHERAPY
     Dosage: 1500 MG, D1-D14, TREATMENT CYCLE 2/UNK, TREATMENT REGIMEN: XP CHEMOTHERAPY
     Route: 048
     Dates: start: 20140910, end: 20140923
  6. METOCLOPRAMIDE HYDROCHLORIDE. [Concomitant]
     Active Substance: METOCLOPRAMIDE HYDROCHLORIDE
     Indication: PROPHYLAXIS OF NAUSEA AND VOMITING
     Dosage: 10 MG, QD
     Route: 041
     Dates: start: 20140910, end: 20140912
  7. LANSOPRAZOLE. [Concomitant]
     Active Substance: LANSOPRAZOLE
     Indication: DUODENAL ULCER
     Dosage: 30 MG, QD
     Route: 041
     Dates: start: 20140910, end: 20140912
  8. EMEND [Suspect]
     Active Substance: APREPITANT
     Indication: PROPHYLAXIS OF NAUSEA AND VOMITING
     Dosage: 125 MG, ONCE, DAY 1
     Route: 048
     Dates: start: 20140910, end: 20140910
  9. CISPLATIN. [Concomitant]
     Active Substance: CISPLATIN
     Indication: CHEMOTHERAPY
     Dosage: 30 MG, FROM D1 TO D4, TREATMENT CYCLE 2/UNK, XP CHEMOTHERAPY
     Route: 041
     Dates: start: 20140910, end: 20140913
  10. DEXAMETHASONE SODIUM PHOSPHATE. [Concomitant]
     Active Substance: DEXAMETHASONE SODIUM PHOSPHATE
     Indication: PROPHYLAXIS OF NAUSEA AND VOMITING
     Dosage: 5 MG, QD
     Route: 041
     Dates: start: 20140910, end: 20140912
  11. VITAMINS (UNSPECIFIED) [Concomitant]
     Active Substance: VITAMINS
     Indication: NUTRITIONAL SUPPLEMENTATION
     Dosage: TOTAL DAILY DOSE: UNKNOWN, FREQUENCY: QD
     Route: 041
     Dates: start: 20140909, end: 20140913

REACTIONS (2)
  - Decreased appetite [Unknown]
  - Upper gastrointestinal haemorrhage [Fatal]

NARRATIVE: CASE EVENT DATE: 20140912
